FAERS Safety Report 5071829-4 (Version None)
Quarter: 2006Q3

REPORT INFORMATION
  Report Type: 
  Country: None (occurrence: None)
  Receive Date: 20060801
  Receipt Date: 20060725
  Transmission Date: 20061208
  Serious: Yes (Life-Threatening, Hospitalization)
  Sender: FDA-Public Use
  Company Number: 200610476BFR

PATIENT
  Age: 82 Year
  Sex: Male

DRUGS (24)
  1. SORAFENIB [Suspect]
     Indication: METASTATIC RENAL CELL CARCINOMA
     Dosage: SEE IMAGE
     Route: 048
     Dates: start: 20060114, end: 20060312
  2. SORAFENIB [Suspect]
     Indication: METASTATIC RENAL CELL CARCINOMA
     Dosage: SEE IMAGE
     Route: 048
     Dates: start: 20060314, end: 20060508
  3. SORAFENIB [Suspect]
     Indication: METASTATIC RENAL CELL CARCINOMA
     Dosage: SEE IMAGE
     Route: 048
     Dates: start: 20060510, end: 20060520
  4. SORAFENIB [Suspect]
     Indication: METASTATIC RENAL CELL CARCINOMA
     Dosage: SEE IMAGE
     Route: 048
     Dates: start: 20060113
  5. SORAFENIB [Suspect]
     Indication: METASTATIC RENAL CELL CARCINOMA
     Dosage: SEE IMAGE
     Route: 048
     Dates: start: 20060313
  6. SORAFENIB [Suspect]
     Indication: METASTATIC RENAL CELL CARCINOMA
     Dosage: SEE IMAGE
     Route: 048
     Dates: start: 20060313
  7. SORAFENIB [Suspect]
     Indication: METASTATIC RENAL CELL CARCINOMA
     Dosage: SEE IMAGE
     Route: 048
     Dates: start: 20060509
  8. SORAFENIB [Suspect]
     Indication: METASTATIC RENAL CELL CARCINOMA
     Dosage: SEE IMAGE
     Route: 048
     Dates: start: 20060509
  9. SORAFENIB [Suspect]
     Indication: METASTATIC RENAL CELL CARCINOMA
     Dosage: SEE IMAGE
     Route: 048
     Dates: start: 20060521
  10. SORAFENIB [Suspect]
  11. SORAFENIB [Suspect]
  12. XATRAL LP [Concomitant]
  13. EXACYL [Concomitant]
  14. DICYNONE [Concomitant]
  15. TARKA LP [Concomitant]
  16. ULTRA-LEVURE [SACCHAROMYCES BOULARDII] [Concomitant]
  17. SMECTA [Concomitant]
  18. DOLIPRANE [Concomitant]
  19. DI-ANTALVIC [Concomitant]
  20. MORPHINE [Concomitant]
  21. IMOVANE [Concomitant]
  22. TRANXENE [Concomitant]
  23. TRIFLUCAN [Concomitant]
  24. ACUPAN [Concomitant]

REACTIONS (2)
  - COAGULOPATHY [None]
  - PULMONARY EMBOLISM [None]
